FAERS Safety Report 9982170 (Version 1)
Quarter: 2014Q1

REPORT INFORMATION
  Report Type: Report from Study
  Country: US (occurrence: US)
  Receive Date: 20140307
  Receipt Date: 20140307
  Transmission Date: 20141002
  Serious: No
  Sender: FDA-Public Use
  Company Number: US-ABBVIE-13P-163-1178454-00

PATIENT
  Age: 61 Year
  Sex: Female

DRUGS (24)
  1. HUMIRA [Suspect]
     Indication: PSORIATIC ARTHROPATHY
     Dates: start: 2013
  2. METHOTREXATE [Concomitant]
     Indication: PRODUCT USED FOR UNKNOWN INDICATION
  3. XYLITOL [Concomitant]
     Indication: HYPERSENSITIVITY
  4. VERAPAMIL [Concomitant]
     Indication: HYPERTENSION
  5. DEXILANT [Concomitant]
     Indication: GASTROOESOPHAGEAL REFLUX DISEASE
  6. ROPINIROLE [Concomitant]
     Indication: RESTLESS LEGS SYNDROME
  7. LAMOTRIGINE [Concomitant]
     Indication: FIBROMYALGIA
  8. FAMCICLOVIR [Concomitant]
     Indication: FIBROMYALGIA
  9. CELEBREX [Concomitant]
     Indication: FIBROMYALGIA
  10. CYMBALTA [Concomitant]
     Indication: FIBROMYALGIA
  11. AMBIEN [Concomitant]
     Indication: INSOMNIA
     Dosage: AT BEDTIME
  12. XANAX [Concomitant]
     Indication: INSOMNIA
     Dosage: AT NIGHT
  13. NUCYNTA [Concomitant]
     Indication: PRODUCT USED FOR UNKNOWN INDICATION
  14. FOLIC ACID [Concomitant]
     Indication: PRODUCT USED FOR UNKNOWN INDICATION
  15. METANX [Concomitant]
     Indication: PRODUCT USED FOR UNKNOWN INDICATION
  16. MEGARED [Concomitant]
     Indication: BLOOD CHOLESTEROL ABNORMAL
  17. CALCIUM 600 + D [Concomitant]
     Indication: PRODUCT USED FOR UNKNOWN INDICATION
  18. MULTIVITAMIN [Concomitant]
     Indication: PRODUCT USED FOR UNKNOWN INDICATION
     Dosage: DAILY
  19. VITAMIN D [Concomitant]
     Indication: PRODUCT USED FOR UNKNOWN INDICATION
  20. ZOFRAN [Concomitant]
     Indication: NAUSEA
  21. INDERAL [Concomitant]
     Indication: HYPERTENSION
  22. METOPROLOL [Concomitant]
     Indication: HYPERTENSION
  23. VERSED [Concomitant]
     Indication: SEDATION
     Dates: start: 20131002, end: 20131002
  24. DEMEROL [Concomitant]
     Indication: SEDATION
     Dates: start: 20131002, end: 20131002

REACTIONS (1)
  - Syncope [Not Recovered/Not Resolved]
